FAERS Safety Report 8766862 (Version 1)
Quarter: 2012Q4

REPORT INFORMATION
  Report Type: 
  Country: FR (occurrence: FR)
  Receive Date: 20120904
  Receipt Date: 20120904
  Transmission Date: 20130627
  Serious: Yes (Life-Threatening)
  Sender: FDA-Public Use
  Company Number: FR-GILEAD-2012-0060545

PATIENT
  Age: 50 Year
  Sex: Male

DRUGS (8)
  1. TRUVADA [Suspect]
     Indication: HIV INFECTION
     Dosage: 1 DF, QD
     Route: 048
     Dates: start: 20110124, end: 20120421
  2. NUROFEN [Suspect]
     Indication: BACK PAIN
     Dosage: UNK
     Route: 048
     Dates: start: 20120420, end: 20120421
  3. NORVIR [Suspect]
     Indication: HIV INFECTION
     Dosage: 100 mg, QD
     Route: 048
     Dates: start: 20110124, end: 20120421
  4. NORVIR [Suspect]
     Dosage: UNK
     Dates: start: 20120531
  5. REYATAZ [Concomitant]
     Indication: HIV INFECTION
     Dosage: 300 mg, QD
     Route: 048
     Dates: start: 20110124, end: 20120421
  6. ATARAX                             /00058401/ [Concomitant]
     Indication: PRODUCT USED FOR UNKNOWN INDICATION
     Dosage: 2.5 mg, QD
     Route: 048
     Dates: start: 20110927, end: 20120421
  7. ATARAX                             /00058401/ [Concomitant]
     Dosage: UNK
  8. LEDERFOLINE [Concomitant]
     Indication: PRODUCT USED FOR UNKNOWN INDICATION
     Dosage: 1 DF, QOD
     Route: 048
     Dates: end: 20120421

REACTIONS (2)
  - Renal tubular disorder [Not Recovered/Not Resolved]
  - Renal failure acute [Not Recovered/Not Resolved]
